FAERS Safety Report 7641567-X (Version None)
Quarter: 2011Q3

REPORT INFORMATION
  Report Type: 
  Country: None (occurrence: None)
  Receive Date: 20110728
  Receipt Date: 20110715
  Transmission Date: 20111222
  Serious: Yes (Other)
  Sender: FDA-Public Use
  Company Number: US-ELI_LILLY_AND_COMPANY-US201104002346

PATIENT
  Sex: Female

DRUGS (3)
  1. CYMBALTA [Concomitant]
     Indication: PRODUCT USED FOR UNKNOWN INDICATION
  2. FORTEO [Suspect]
     Dosage: 20 UG, QD
  3. FORTEO [Suspect]
     Indication: OSTEOPOROSIS
     Dosage: 20 UG, QD
     Dates: start: 20110101

REACTIONS (4)
  - FOOT OPERATION [None]
  - JOINT CREPITATION [None]
  - BUNION OPERATION [None]
  - PAIN IN EXTREMITY [None]
